FAERS Safety Report 9172225 (Version 1)
Quarter: 2013Q1

REPORT INFORMATION
  Report Type: Spontaneous
  Country: JP (occurrence: JP)
  Receive Date: 20130319
  Receipt Date: 20130319
  Transmission Date: 20140127
  Serious: Yes (Other)
  Sender: FDA-Public Use
  Company Number: JP-BAXTER-2013BAX006873

PATIENT
  Age: 51 Year
  Sex: Female
  Weight: 56 kg

DRUGS (11)
  1. SUPRANE [Suspect]
     Indication: INDUCTION OF ANAESTHESIA
     Route: 055
     Dates: start: 20130219, end: 20130219
  2. SUPRANE [Suspect]
     Indication: MAINTENANCE OF ANAESTHESIA
     Route: 055
     Dates: start: 20130219, end: 20130219
  3. PROPOFOL [Suspect]
     Indication: INDUCTION OF ANAESTHESIA
     Route: 065
     Dates: start: 20130219, end: 20130219
  4. PROPOFOL [Suspect]
     Indication: ENDOTRACHEAL INTUBATION COMPLICATION
     Route: 065
     Dates: start: 20130219, end: 20130219
  5. ULTIVA [Suspect]
     Indication: INDUCTION OF ANAESTHESIA
     Dosage: 0.3
     Route: 065
     Dates: start: 20130219, end: 20130219
  6. ULTIVA [Suspect]
     Indication: MAINTENANCE OF ANAESTHESIA
     Dosage: 0.1-0.2
     Route: 065
     Dates: start: 20130219, end: 20130219
  7. ESLAX [Suspect]
     Indication: INDUCTION OF ANAESTHESIA
     Route: 065
     Dates: start: 20130219, end: 20130219
  8. ESLAX [Suspect]
     Indication: MUSCLE RELAXANT THERAPY
     Route: 065
     Dates: start: 20130219, end: 20130219
  9. FENTANYL [Suspect]
     Indication: MAINTENANCE OF ANAESTHESIA
     Route: 065
     Dates: start: 20130219, end: 20130219
  10. OXYGEN [Concomitant]
     Indication: INDUCTION OF ANAESTHESIA
     Route: 065
     Dates: start: 20130219, end: 20130219
  11. OXYGEN [Concomitant]
     Indication: MAINTENANCE OF ANAESTHESIA
     Route: 065
     Dates: start: 20130219, end: 20130219

REACTIONS (1)
  - Hypoventilation [Recovered/Resolved]
